FAERS Safety Report 5164074-5 (Version None)
Quarter: 2006Q4

REPORT INFORMATION
  Report Type: 
  Country: None (occurrence: None)
  Receive Date: 20061124
  Receipt Date: 20061109
  Transmission Date: 20070319
  Serious: Yes (Death)
  Sender: FDA-Public Use
  Company Number: 2006141164

PATIENT
  Age: 30 Year

DRUGS (2)
  1. DIPHENHYDRAMINE HCL [Suspect]
     Indication: DRUG ABUSER
     Dosage: UNSPECIFIED, INHALATION
     Route: 055
  2. COCAINE (COCAINE) [Suspect]
     Indication: DRUG ABUSER
     Dosage: UNSPECIFIED, INHALATION
     Route: 055

REACTIONS (2)
  - DRUG ABUSER [None]
  - INCORRECT ROUTE OF DRUG ADMINISTRATION [None]
